FAERS Safety Report 4778164-X (Version None)
Quarter: 2005Q3

REPORT INFORMATION
  Report Type: 
  Country: None (occurrence: None)
  Receive Date: 20050922
  Receipt Date: 20050909
  Transmission Date: 20060218
  Serious: Yes (Hospitalization)
  Sender: FDA-Public Use
  Company Number: 2005BI016912

PATIENT
  Age: 44 Year
  Sex: Female
  Weight: 66.6788 kg

DRUGS (1)
  1. AVONEX [Suspect]
     Indication: MULTIPLE SCLEROSIS
     Dosage: 30 UG;QW;IM
     Route: 030
     Dates: start: 20040212

REACTIONS (5)
  - ENDOMETRIOSIS [None]
  - INTESTINAL OBSTRUCTION [None]
  - OVARIAN ENLARGEMENT [None]
  - POLLAKIURIA [None]
  - UTERINE ENLARGEMENT [None]
